FAERS Safety Report 9377985 (Version 1)
Quarter: 2013Q3

REPORT INFORMATION
  Report Type: Spontaneous
  Country: NO (occurrence: NO)
  Receive Date: 20130701
  Receipt Date: 20130701
  Transmission Date: 20140515
  Serious: Yes (Other)
  Sender: FDA-Public Use
  Company Number: NO-ELI_LILLY_AND_COMPANY-NO201306007399

PATIENT
  Sex: Male

DRUGS (1)
  1. ZYPREXA [Suspect]
     Dosage: 1 DF, UNKNOWN

REACTIONS (98)
  - Suicidal ideation [Unknown]
  - Anxiety [Unknown]
  - Schizophrenia, paranoid type [Unknown]
  - Psychotic disorder [Unknown]
  - Haemophilia [Unknown]
  - Multiple sclerosis [Unknown]
  - Colon cancer [Unknown]
  - Cardiac disorder [Unknown]
  - Bipolar disorder [Unknown]
  - Brain injury [Unknown]
  - Coeliac disease [Unknown]
  - Bulimia nervosa [Unknown]
  - Gastric ulcer [Unknown]
  - Narcolepsy [Unknown]
  - Rheumatic disorder [Unknown]
  - Neck injury [Unknown]
  - Nerve injury [Unknown]
  - Asthma [Unknown]
  - Memory impairment [Unknown]
  - Hearing impaired [Unknown]
  - Abnormal dreams [Unknown]
  - Dyslexia [Unknown]
  - Visual acuity reduced [Unknown]
  - Gynaecomastia [Unknown]
  - Breast pain [Unknown]
  - Muscle spasms [Unknown]
  - Musculoskeletal stiffness [Unknown]
  - Nausea [Unknown]
  - Inflammation [Unknown]
  - Pain [Unknown]
  - Prostatic disorder [Unknown]
  - Polyuria [Unknown]
  - Dysuria [Unknown]
  - Spermatozoa abnormal [Unknown]
  - Nocturnal emission [Unknown]
  - Genital pain [Unknown]
  - Alcohol intolerance [Unknown]
  - Ingrowing nail [Unknown]
  - Acne [Unknown]
  - Cold sweat [Unknown]
  - Eye swelling [Unknown]
  - Ocular hyperaemia [Unknown]
  - Ear swelling [Unknown]
  - Hyperacusis [Unknown]
  - Sinus disorder [Unknown]
  - Dysgeusia [Unknown]
  - Tooth discolouration [Unknown]
  - Food craving [Unknown]
  - Body fat disorder [Unknown]
  - Hair texture abnormal [Unknown]
  - Hair growth abnormal [Unknown]
  - Feeling of body temperature change [Unknown]
  - Hyperaesthesia [Unknown]
  - Dysgraphia [Unknown]
  - Skin odour abnormal [Unknown]
  - Dark circles under eyes [Unknown]
  - Hyperhidrosis [Unknown]
  - Breath odour [Unknown]
  - Muscle swelling [Unknown]
  - Paraesthesia oral [Unknown]
  - Oropharyngeal pain [Unknown]
  - Seasonal allergy [Unknown]
  - Swollen tongue [Unknown]
  - Hormone level abnormal [Unknown]
  - Hypothermia [Unknown]
  - Dehydration [Unknown]
  - Tic [Unknown]
  - Pruritus [Unknown]
  - Snoring [Unknown]
  - Nightmare [Unknown]
  - Parosmia [Unknown]
  - Moaning [Unknown]
  - Flatulence [Unknown]
  - Gastric disorder [Unknown]
  - Dandruff [Unknown]
  - Headache [Unknown]
  - Pain threshold decreased [Unknown]
  - Respiratory disorder [Unknown]
  - Diarrhoea [Unknown]
  - Apraxia [Unknown]
  - Coordination abnormal [Unknown]
  - Corneal disorder [Unknown]
  - Stress [Unknown]
  - Diabetes mellitus [Unknown]
  - Speech disorder [Unknown]
  - Dyskinesia [Unknown]
  - Dizziness [Unknown]
  - Weight increased [Unknown]
  - Increased appetite [Unknown]
  - Amnesia [Unknown]
  - Tremor [Unknown]
  - Somnolence [Unknown]
  - Local swelling [Unknown]
  - Urinary incontinence [Unknown]
  - Constipation [Unknown]
  - Arthralgia [Unknown]
  - Abdominal distension [Unknown]
  - Drug hypersensitivity [Unknown]
